FAERS Safety Report 22099000 (Version 1)
Quarter: 2023Q1

REPORT INFORMATION
  Report Type: Spontaneous
  Country: SE (occurrence: SE)
  Receive Date: 20230315
  Receipt Date: 20230315
  Transmission Date: 20230417
  Serious: Yes (Hospitalization)
  Sender: FDA-Public Use
  Company Number: None

PATIENT
  Age: 29 Year
  Sex: Female

DRUGS (2)
  1. VENLAFAXINE [Suspect]
     Active Substance: VENLAFAXINE HYDROCHLORIDE
     Indication: Product used for unknown indication
     Dosage: 80UNIT 150 MG VENLAFAXINE, 1 TOTAL
     Route: 048
     Dates: start: 20191107, end: 20191107
  2. PROPIOMAZINE [Suspect]
     Active Substance: PROPIOMAZINE
     Indication: Product used for unknown indication
     Dosage: 1000 MILLIGRAM (1 G PROPAVAN), 1 TOTAL
     Route: 048
     Dates: start: 20191107, end: 20191107

REACTIONS (7)
  - Body temperature increased [Unknown]
  - Hyperreflexia [Unknown]
  - Intentional self-injury [Unknown]
  - Depressed level of consciousness [Unknown]
  - Intentional overdose [Unknown]
  - Tachycardia [Unknown]
  - Mydriasis [Unknown]

NARRATIVE: CASE EVENT DATE: 20191107
